FAERS Safety Report 24945750 (Version 1)
Quarter: 2025Q1

REPORT INFORMATION
  Report Type: Report from Study
  Country: DE (occurrence: DE)
  Receive Date: 20250209
  Receipt Date: 20250209
  Transmission Date: 20250408
  Serious: Yes (Disabling, Other)
  Sender: ABBVIE
  Company Number: DE-ABBVIE-6120729

PATIENT
  Sex: Male

DRUGS (1)
  1. HUMIRA [Suspect]
     Active Substance: ADALIMUMAB
     Indication: Crohn^s disease
     Route: 058
     Dates: start: 20111201

REACTIONS (4)
  - Cerebral haemorrhage [Recovered/Resolved with Sequelae]
  - Disability [Not Recovered/Not Resolved]
  - Aneurysm [Recovered/Resolved with Sequelae]
  - Fistula [Recovered/Resolved with Sequelae]

NARRATIVE: CASE EVENT DATE: 20231129
